FAERS Safety Report 13872536 (Version 1)
Quarter: 2017Q3

REPORT INFORMATION
  Report Type: Report from Study
  Country: JP (occurrence: JP)
  Receive Date: 20170816
  Receipt Date: 20170816
  Transmission Date: 20171127
  Serious: Yes (Hospitalization)
  Sender: FDA-Public Use
  Company Number: JP-ACTELION-A-CH2017-157886

PATIENT
  Age: 71 Year
  Sex: Male

DRUGS (13)
  1. BAKTAR [Concomitant]
     Active Substance: SULFAMETHOXAZOLE\TRIMETHOPRIM
  2. ADEMPAS [Concomitant]
     Active Substance: RIOCIGUAT
  3. LASIX [Concomitant]
     Active Substance: FUROSEMIDE
  4. OPSUMIT [Suspect]
     Active Substance: MACITENTAN
     Indication: PULMONARY ARTERIAL HYPERTENSION
     Dosage: 10 MG, OD
     Route: 048
     Dates: start: 20150622, end: 20161011
  5. OPSUMIT [Suspect]
     Active Substance: MACITENTAN
     Dosage: 10 MG, OD
     Route: 048
     Dates: start: 20161108
  6. PIRESPA [Concomitant]
     Active Substance: PIRFENIDONE
  7. PREDNISOLONE. [Concomitant]
     Active Substance: PREDNISOLONE
  8. ADCIRCA [Concomitant]
     Active Substance: TADALAFIL
  9. OXYGEN. [Concomitant]
     Active Substance: OXYGEN
  10. VENTAVIS [Concomitant]
     Active Substance: ILOPROST
     Indication: PULMONARY ARTERIAL HYPERTENSION
  11. UPTRAVI [Suspect]
     Active Substance: SELEXIPAG
     Indication: PULMONARY ARTERIAL HYPERTENSION
     Dosage: 0.2 MG, BID
     Route: 048
     Dates: start: 20161202, end: 20161209
  12. UPTRAVI [Suspect]
     Active Substance: SELEXIPAG
     Dosage: 0.2 MG, QID
     Route: 048
     Dates: start: 20161210, end: 20161214
  13. BERASUS [Concomitant]
     Active Substance: BERAPROST SODIUM

REACTIONS (2)
  - Ileus [Recovering/Resolving]
  - Dyspnoea exertional [Recovering/Resolving]

NARRATIVE: CASE EVENT DATE: 20161011
